FAERS Safety Report 4730735-2 (Version None)
Quarter: 2005Q3

REPORT INFORMATION
  Report Type: 
  Country: None (occurrence: None)
  Receive Date: 20050725
  Receipt Date: 20050322
  Transmission Date: 20060218
  Serious: No
  Sender: FDA-Public Use
  Company Number: USA050291491

PATIENT
  Age: 13 Year
  Sex: Male

DRUGS (2)
  1. STRATTERA [Suspect]
     Indication: ATTENTION DEFICIT/HYPERACTIVITY DISORDER
     Dosage: 40 MG
     Dates: start: 20030101
  2. IBUPROFEN [Concomitant]

REACTIONS (12)
  - ABDOMINAL DISCOMFORT [None]
  - ARTHRALGIA [None]
  - DECREASED APPETITE [None]
  - DYSURIA [None]
  - FATIGUE [None]
  - FEELING ABNORMAL [None]
  - INFLUENZA LIKE ILLNESS [None]
  - MALAISE [None]
  - MONONUCLEOSIS SYNDROME [None]
  - MOOD SWINGS [None]
  - PRURITUS [None]
  - URINARY TRACT INFECTION [None]
